FAERS Safety Report 9849311 (Version 1)
Quarter: 2014Q1

REPORT INFORMATION
  Report Type: Spontaneous
  Country: US (occurrence: None)
  Receive Date: 20140127
  Receipt Date: 20140127
  Transmission Date: 20141002
  Serious: Yes (Hospitalization)
  Sender: FDA-Public Use
  Company Number: None

PATIENT
  Age: 84 Year
  Sex: Female

DRUGS (6)
  1. FORTEO [Suspect]
     Route: 058
     Dates: start: 20130213, end: 20140116
  2. CALCIUM [Concomitant]
  3. VITAMIN D [Concomitant]
  4. ASPIRIN [Concomitant]
  5. METRONIDAZOLE [Concomitant]
  6. SANDOSTATIN LAR [Concomitant]

REACTIONS (1)
  - Hypertension [None]
